FAERS Safety Report 7416827-8 (Version None)
Quarter: 2011Q2

REPORT INFORMATION
  Report Type: 
  Country: None (occurrence: None)
  Receive Date: 20110415
  Receipt Date: 20110404
  Transmission Date: 20111010
  Serious: Yes (Hospitalization, Other)
  Sender: FDA-Public Use
  Company Number: US-ELI_LILLY_AND_COMPANY-US201104002385

PATIENT
  Sex: Female

DRUGS (4)
  1. LIPITOR [Concomitant]
  2. NORVASC [Concomitant]
  3. MONOPRIL [Concomitant]
  4. EVISTA [Suspect]
     Indication: OSTEOPOROSIS
     Dosage: 60 MG, QD
     Dates: start: 19990101

REACTIONS (7)
  - ANXIETY [None]
  - MUSCLE SPASMS [None]
  - LOSS OF CONSCIOUSNESS [None]
  - SYNOVIAL CYST [None]
  - MENISCUS LESION [None]
  - BODY HEIGHT DECREASED [None]
  - ARTHRALGIA [None]
